FAERS Safety Report 12822863 (Version 5)
Quarter: 2016Q4

REPORT INFORMATION
  Report Type: Spontaneous
  Country: JP (occurrence: JP)
  Receive Date: 20161007
  Receipt Date: 20161216
  Transmission Date: 20170207
  Serious: Yes (Hospitalization)
  Sender: FDA-Public Use
  Company Number: JP-ASTRAZENECA-2016SF05096

PATIENT
  Age: 749 Month
  Sex: Female
  Weight: 63 kg

DRUGS (5)
  1. CADUET [Concomitant]
     Active Substance: AMLODIPINE BESYLATE\ATORVASTATIN CALCIUM
     Indication: HYPERTENSION
     Dosage: AMLODIPINE 5 MG AND ATORVASTATIN 10 MG, EVERY DAY
     Route: 048
     Dates: start: 20161003
  2. GLIMEPIRIDE. [Concomitant]
     Active Substance: GLIMEPIRIDE
     Indication: TYPE 2 DIABETES MELLITUS
     Route: 048
  3. FORXIGA [Suspect]
     Active Substance: DAPAGLIFLOZIN
     Indication: TYPE 2 DIABETES MELLITUS
     Route: 048
     Dates: start: 20160908, end: 20160913
  4. METGLUCO [Concomitant]
     Active Substance: METFORMIN HYDROCHLORIDE
     Indication: TYPE 2 DIABETES MELLITUS
     Route: 048
  5. FORXIGA [Suspect]
     Active Substance: DAPAGLIFLOZIN
     Indication: TYPE 2 DIABETES MELLITUS
     Route: 048
     Dates: start: 20160805, end: 20160825

REACTIONS (3)
  - Drug dose omission [Recovered/Resolved]
  - Cerebral infarction [Recovered/Resolved with Sequelae]
  - Pruritus [Recovered/Resolved]

NARRATIVE: CASE EVENT DATE: 201608
